FAERS Safety Report 23331616 (Version 1)
Quarter: 2023Q4

REPORT INFORMATION
  Report Type: Spontaneous
  Country: US (occurrence: US)
  Receive Date: 20231222
  Receipt Date: 20231222
  Transmission Date: 20240110
  Serious: Yes (Other)
  Sender: FDA-Public Use
  Company Number: US-JNJFOC-20231228421

PATIENT
  Age: 43 Year
  Sex: Male

DRUGS (3)
  1. TREMFYA [Suspect]
     Active Substance: GUSELKUMAB
     Indication: Psoriatic arthropathy
     Route: 065
     Dates: start: 2023
  2. TREMFYA [Suspect]
     Active Substance: GUSELKUMAB
  3. TREMFYA [Suspect]
     Active Substance: GUSELKUMAB

REACTIONS (7)
  - Meningitis bacterial [Unknown]
  - Swelling face [Unknown]
  - Joint swelling [Unknown]
  - Ear swelling [Unknown]
  - Viral infection [Unknown]
  - Oral herpes [Unknown]
  - Arthralgia [Unknown]
